FAERS Safety Report 7877724-7 (Version None)
Quarter: 2011Q4

REPORT INFORMATION
  Report Type: 
  Country: None (occurrence: None)
  Receive Date: 20111031
  Receipt Date: 20111031
  Transmission Date: 20120403
  Serious: Yes (Other)
  Sender: FDA-Public Use
  Company Number: None

PATIENT
  Age: 16 Year
  Sex: Male
  Weight: 72.574 kg

DRUGS (1)
  1. BENZACLIN [Suspect]
     Indication: ACNE
     Route: 061
     Dates: start: 20021227, end: 20101118

REACTIONS (6)
  - GASTROINTESTINAL INFECTION [None]
  - NAIL DISCOLOURATION [None]
  - ONYCHOCLASIS [None]
  - CANDIDIASIS [None]
  - SKIN DISCOLOURATION [None]
  - DIARRHOEA [None]
